FAERS Safety Report 6259427-8 (Version None)
Quarter: 2009Q3

REPORT INFORMATION
  Report Type: 
  Country: None (occurrence: None)
  Receive Date: 20090708
  Receipt Date: 20090701
  Transmission Date: 20100115
  Serious: Yes (Other)
  Sender: FDA-Public Use
  Company Number: US-JNJCH-2009018110

PATIENT
  Age: 72 Year
  Sex: Female
  Weight: 112.5 kg

DRUGS (2)
  1. LUDENS BERRY ASSORTMENT THROAT DROPS [Suspect]
     Indication: THROAT IRRITATION
     Dosage: TEXT:FIVE DROPS FOR THE ENTIRE DAY
     Route: 048
  2. GLUCOTROL [Concomitant]
     Indication: DIABETES MELLITUS
     Dosage: TEXT:UNSPECIFIED
     Route: 065

REACTIONS (1)
  - BLOOD GLUCOSE INCREASED [None]
